FAERS Safety Report 17509412 (Version 1)
Quarter: 2020Q1

REPORT INFORMATION
  Report Type: Spontaneous
  Country: US (occurrence: US)
  Receive Date: 20200306
  Receipt Date: 20200306
  Transmission Date: 20200409
  Serious: Yes (Life-Threatening, Hospitalization, Other)
  Sender: FDA-Public Use
  Company Number: US-HIKMA PHARMACEUTICALS USA INC.-US-H14001-20-50761

PATIENT
  Age: 32 Year
  Sex: Female

DRUGS (2)
  1. CEPHALEXIN. [Suspect]
     Active Substance: CEPHALEXIN
     Indication: SKIN LACERATION
     Dosage: ()
     Route: 065
  2. CLINDAMYCIN. [Concomitant]
     Active Substance: CLINDAMYCIN
     Indication: SKIN LACERATION
     Dosage: ()
     Route: 065

REACTIONS (3)
  - Diabetic ketoacidosis [Unknown]
  - Gastroenteritis staphylococcal [Unknown]
  - Appendicitis [Recovered/Resolved]
